FAERS Safety Report 5432543-6 (Version None)
Quarter: 2007Q3

REPORT INFORMATION
  Report Type: 
  Country: None (occurrence: None)
  Receive Date: 20070831
  Receipt Date: 20070822
  Transmission Date: 20080115
  Serious: Yes (Hospitalization)
  Sender: FDA-Public Use
  Company Number: PHBS2007JP14175

PATIENT
  Age: 1 Year
  Sex: Male

DRUGS (1)
  1. LUDIOMIL [Suspect]
     Dosage: 10 MG, ONCE/SINGLE
     Route: 048
     Dates: start: 20070821, end: 20070821

REACTIONS (2)
  - ACCIDENTAL EXPOSURE [None]
  - GASTRIC LAVAGE [None]
